FAERS Safety Report 6811952-4 (Version None)
Quarter: 2010Q3

REPORT INFORMATION
  Report Type: 
  Country: None (occurrence: None)
  Receive Date: 20100701
  Receipt Date: 20100617
  Transmission Date: 20110219
  Serious: Yes (Other)
  Sender: FDA-Public Use
  Company Number: DE-RANBAXY-2010RR-35236

PATIENT
  Sex: Female
  Weight: 63 kg

DRUGS (2)
  1. CEFACLOR 500MG BASICS KAPSELN [Suspect]
     Indication: BRONCHITIS
     Dosage: 500 MG, TID
     Dates: start: 20100320
  2. CEFACLOR 500MG BASICS KAPSELN [Suspect]
     Indication: TONSILLITIS

REACTIONS (3)
  - LIP SWELLING [None]
  - RASH [None]
  - SWELLING FACE [None]
